FAERS Safety Report 20451037 (Version 1)
Quarter: 2022Q1

REPORT INFORMATION
  Report Type: Spontaneous
  Country: US (occurrence: None)
  Receive Date: 20220209
  Receipt Date: 20220209
  Transmission Date: 20220424
  Serious: Yes (Death)
  Sender: FDA-Public Use
  Company Number: None

PATIENT
  Age: 71 Year
  Weight: 76.2 kg

DRUGS (13)
  1. INLYTA [Suspect]
     Active Substance: AXITINIB
     Indication: Renal cancer
     Dosage: FREQUENCY : TWICE A DAY;?
     Route: 048
     Dates: start: 20220208
  2. CILOSTAZOL [Concomitant]
     Active Substance: CILOSTAZOL
  3. PENTOXIFYLLINE [Concomitant]
     Active Substance: PENTOXIFYLLINE
  4. NIFEDIPINE [Concomitant]
     Active Substance: NIFEDIPINE
  5. METOPROLOL [Concomitant]
     Active Substance: METOPROLOL
  6. LOSARTAN [Concomitant]
     Active Substance: LOSARTAN
  7. NORCO [Concomitant]
     Active Substance: ACETAMINOPHEN\HYDROCODONE BITARTRATE
  8. GABAPENTIN [Concomitant]
     Active Substance: GABAPENTIN
  9. ATORVASTATIN [Concomitant]
     Active Substance: ATORVASTATIN
  10. Prochlopera [Concomitant]
  11. MS CONTIN [Concomitant]
     Active Substance: MORPHINE SULFATE
  12. ASPIRIN [Concomitant]
     Active Substance: ASPIRIN
  13. PREDNISONE [Concomitant]
     Active Substance: PREDNISONE

REACTIONS (1)
  - Death [None]

NARRATIVE: CASE EVENT DATE: 20220209
